FAERS Safety Report 16756503 (Version 2)
Quarter: 2019Q3

REPORT INFORMATION
  Report Type: Spontaneous
  Country: DE (occurrence: DE)
  Receive Date: 20190829
  Receipt Date: 20190829
  Transmission Date: 20191005
  Serious: Yes (Other)
  Sender: FDA-Public Use
  Company Number: PHHY2019DE197166

PATIENT
  Age: 74 Year
  Sex: Female
  Weight: 72.6 kg

DRUGS (14)
  1. DOXORUBICIN [Suspect]
     Active Substance: DOXORUBICIN
     Indication: DIFFUSE LARGE B-CELL LYMPHOMA
     Dosage: 1ST LINE, ACCORDING TO R-CHOP 14 REGIMEN, FULL DOSE, 6 CYCLES
     Route: 065
     Dates: start: 201501, end: 201505
  2. ETOPOSIDE. [Suspect]
     Active Substance: ETOPOSIDE
     Indication: DIFFUSE LARGE B-CELL LYMPHOMA
     Route: 065
  3. CARBOPLATIN. [Suspect]
     Active Substance: CARBOPLATIN
     Indication: DIFFUSE LARGE B-CELL LYMPHOMA
     Dosage: 2ND LINE, ACCORDING TO R-ICE REGIMEN, FULL DOSE, 3 CYCLES
     Route: 065
     Dates: start: 201712, end: 201801
  4. PREDNISOLONE. [Suspect]
     Active Substance: PREDNISOLONE
     Indication: DIFFUSE LARGE B-CELL LYMPHOMA
     Dosage: 1ST LINE, ACCORDING TO R-CHOP 14 REGIMEN, FULL DOSE, 6 CYCLES
     Route: 065
     Dates: start: 201501, end: 201505
  5. ETOPOSIDE. [Suspect]
     Active Substance: ETOPOSIDE
     Dosage: 2ND LINE, ACCORDING TO R-ICE REGIMEN, FULL DOSE, 3 CYCLES
     Route: 065
     Dates: start: 201712, end: 201801
  6. MABTHERA [Suspect]
     Active Substance: RITUXIMAB
     Dosage: 2ND LINE, ACCORDING TO R-ICE REGIMEN, FULL DOSE, 3 CYCLES
     Route: 065
     Dates: start: 201712, end: 201801
  7. CYTARABINE. [Suspect]
     Active Substance: CYTARABINE
     Indication: DIFFUSE LARGE B-CELL LYMPHOMA
     Route: 065
  8. CARMUSTINE. [Suspect]
     Active Substance: CARMUSTINE
     Indication: DIFFUSE LARGE B-CELL LYMPHOMA
     Route: 065
  9. CYCLOPHOSPHAMIDE. [Suspect]
     Active Substance: CYCLOPHOSPHAMIDE
     Indication: DIFFUSE LARGE B-CELL LYMPHOMA
     Dosage: 1ST LINE, ACCORDING  TO R-CHOP 14 REGIMEN, FULL DOSE, 6 CYCLES
     Route: 065
     Dates: start: 201501, end: 201505
  10. MABTHERA [Suspect]
     Active Substance: RITUXIMAB
     Indication: DIFFUSE LARGE B-CELL LYMPHOMA
     Dosage: 1ST LINE, ACCORDING  TO R-CHOP 14 REGIMEN, FULL DOSE, 6 CYCLES
     Route: 065
     Dates: start: 201501, end: 201505
  11. VINCRISTINE [Suspect]
     Active Substance: VINCRISTINE
     Indication: DIFFUSE LARGE B-CELL LYMPHOMA
     Dosage: 1ST LINE, ACCORDING TO R-CHOP 14 REGIMEN, FULL DOSE, 6 CYCLES
     Route: 065
     Dates: start: 201501, end: 201505
  12. MABTHERA [Suspect]
     Active Substance: RITUXIMAB
     Dosage: FURTHER LINE THERAPY, ACCORDING TO R-BEAM REGIMEN + HSCT, 1 CYCLE
     Route: 065
  13. MELPHALAN. [Suspect]
     Active Substance: MELPHALAN
     Indication: DIFFUSE LARGE B-CELL LYMPHOMA
     Route: 065
  14. IFOSFAMIDE. [Suspect]
     Active Substance: IFOSFAMIDE
     Indication: DIFFUSE LARGE B-CELL LYMPHOMA
     Dosage: 2ND LINE, ACCORDING TO R-ICE REGIMEN, FULL DOSE, 3 CYCLES
     Route: 065
     Dates: start: 201712, end: 201801

REACTIONS (1)
  - Febrile neutropenia [Recovered/Resolved]

NARRATIVE: CASE EVENT DATE: 201802
